FAERS Safety Report 7013342-0 (Version None)
Quarter: 2010Q3

REPORT INFORMATION
  Report Type: 
  Country: None (occurrence: None)
  Receive Date: 20100924
  Receipt Date: 20100917
  Transmission Date: 20110219
  Serious: Yes (Hospitalization)
  Sender: FDA-Public Use
  Company Number: JP-ROCHE-685603

PATIENT
  Sex: Female
  Weight: 72.8 kg

DRUGS (43)
  1. TOCILIZUMAB [Suspect]
     Indication: JUVENILE ARTHRITIS
     Route: 041
     Dates: start: 20090817, end: 20090831
  2. TOCILIZUMAB [Suspect]
     Route: 041
     Dates: start: 20090914, end: 20090914
  3. TOCILIZUMAB [Suspect]
     Route: 041
     Dates: start: 20090928, end: 20100414
  4. TOCILIZUMAB [Suspect]
     Route: 041
     Dates: start: 20100506, end: 20100506
  5. TOCILIZUMAB [Suspect]
     Route: 041
     Dates: start: 20100520, end: 20100601
  6. TOCILIZUMAB [Suspect]
     Route: 041
     Dates: start: 20100614, end: 20100629
  7. TOCILIZUMAB [Suspect]
     Route: 041
     Dates: start: 20100715
  8. PREDNISOLONE [Suspect]
     Indication: JUVENILE ARTHRITIS
     Route: 048
     Dates: end: 20090702
  9. PREDNISOLONE [Suspect]
     Route: 048
     Dates: start: 20090703, end: 20090713
  10. PREDNISOLONE [Suspect]
     Route: 048
     Dates: start: 20090721, end: 20090724
  11. PREDNISOLONE [Suspect]
     Route: 048
     Dates: start: 20090804, end: 20090814
  12. PREDNISOLONE [Suspect]
     Route: 048
     Dates: start: 20090815, end: 20090817
  13. PREDNISOLONE [Suspect]
     Route: 048
     Dates: start: 20090818, end: 20090831
  14. PREDNISOLONE [Suspect]
     Route: 048
     Dates: start: 20090901, end: 20090914
  15. PREDNISOLONE [Suspect]
     Route: 048
     Dates: start: 20090915, end: 20090928
  16. PREDNISOLONE [Suspect]
     Route: 048
     Dates: start: 20090929, end: 20091013
  17. PREDNISOLONE [Suspect]
     Route: 048
     Dates: start: 20091014, end: 20091028
  18. PREDNISOLONE [Suspect]
     Route: 048
     Dates: start: 20091029, end: 20091110
  19. PREDNISOLONE [Suspect]
     Route: 048
     Dates: start: 20091111, end: 20091125
  20. PREDNISOLONE [Suspect]
     Route: 048
     Dates: start: 20091126, end: 20091208
  21. PREDNISOLONE [Suspect]
     Route: 048
     Dates: start: 20091209, end: 20091222
  22. PREDNISOLONE [Suspect]
     Route: 048
     Dates: start: 20091223, end: 20100119
  23. PREDNISOLONE [Suspect]
     Route: 048
     Dates: start: 20100120, end: 20100217
  24. PREDNISOLONE [Suspect]
     Route: 048
     Dates: start: 20100218, end: 20100316
  25. PREDNISOLONE [Suspect]
     Route: 048
     Dates: start: 20100317, end: 20100506
  26. PREDNISOLONE [Suspect]
     Route: 048
     Dates: start: 20100507, end: 20100601
  27. PREDNISOLONE [Suspect]
     Route: 048
     Dates: start: 20100610, end: 20100715
  28. PREDNISOLONE [Suspect]
     Route: 048
     Dates: start: 20100716, end: 20100813
  29. PREDNISOLONE [Suspect]
     Route: 048
     Dates: start: 20100814
  30. SANDIMMUNE [Suspect]
     Indication: JUVENILE ARTHRITIS
     Dosage: FORM: INJECTIONROUTE: INTRAVENOUS (NOT OTHERWISE SPECIFIED)
     Route: 042
     Dates: start: 20090726, end: 20090808
  31. SANDIMMUNE [Suspect]
     Route: 042
     Dates: start: 20100601, end: 20100606
  32. NEORAL [Suspect]
     Indication: JUVENILE ARTHRITIS
     Route: 048
     Dates: start: 20090809, end: 20090817
  33. NEORAL [Suspect]
     Route: 048
     Dates: start: 20090818, end: 20090928
  34. DEXAMETHASONE PALMITATE [Suspect]
     Dosage: DRUG NAME: LIMETHASON
     Route: 041
     Dates: start: 20100601, end: 20100603
  35. FAMOTIDINE [Concomitant]
     Route: 048
  36. ONEALFA [Concomitant]
     Route: 048
  37. NORVASC [Concomitant]
     Route: 048
     Dates: start: 20090719, end: 20090802
  38. NORVASC [Concomitant]
     Route: 048
     Dates: start: 20090803, end: 20091110
  39. NORVASC [Concomitant]
     Route: 048
     Dates: start: 20100607
  40. LONGES [Concomitant]
     Route: 048
     Dates: start: 20090804
  41. SOLU-CORTEF [Concomitant]
     Dosage: ROUTE; INJECTION (NOS)
     Route: 042
     Dates: start: 20090914, end: 20090914
  42. SOLU-CORTEF [Concomitant]
     Dosage: ROUTE; INJECTION (NOS)
     Route: 042
     Dates: start: 20090928, end: 20090928
  43. ATARAX [Concomitant]
     Dosage: ROUTE; INJECTION (NOS)
     Route: 042
     Dates: start: 20090914, end: 20090914

REACTIONS (5)
  - HISTIOCYTOSIS HAEMATOPHAGIC [None]
  - HYPERTENSION [None]
  - IMPAIRED HEALING [None]
  - SUBCUTANEOUS ABSCESS [None]
  - THERMAL BURN [None]
